FAERS Safety Report 4988926-1 (Version None)
Quarter: 2006Q2

REPORT INFORMATION
  Report Type: 
  Country: None (occurrence: None)
  Receive Date: 20060425
  Receipt Date: 20060414
  Transmission Date: 20061013
  Serious: Yes (Hospitalization)
  Sender: FDA-Public Use
  Company Number: 224157

PATIENT
  Age: 61 Year
  Sex: Female

DRUGS (2)
  1. RAPTIVA [Suspect]
     Indication: PSORIASIS
     Dosage: 1 ML, 1/WEEK, SUBCUTANEOUS
     Route: 058
     Dates: start: 20031218
  2. METHOTREXATE [Concomitant]

REACTIONS (4)
  - DYSPNOEA [None]
  - LUNG DISORDER [None]
  - PNEUMONIA [None]
  - PNEUMONITIS [None]
